FAERS Safety Report 16642047 (Version 1)
Quarter: 2019Q3

REPORT INFORMATION
  Report Type: Spontaneous
  Country: CA (occurrence: CA)
  Receive Date: 20190729
  Receipt Date: 20190729
  Transmission Date: 20191004
  Serious: Yes (Other)
  Sender: FDA-Public Use
  Company Number: CA-PFIZER INC-2019317171

PATIENT
  Age: 89 Year
  Sex: Female

DRUGS (4)
  1. METHOTREXATE. [Concomitant]
     Active Substance: METHOTREXATE
     Dosage: UNK
  2. HUMIRA [Suspect]
     Active Substance: ADALIMUMAB
     Dosage: 40 MG, UNK (1 EVERY 2 WEEKS)
     Route: 058
  3. AMLODIPINE BESILATE [Suspect]
     Active Substance: AMLODIPINE BESYLATE
     Dosage: UNK
     Route: 048
  4. AGGRENOX [Suspect]
     Active Substance: ASPIRIN\DIPYRIDAMOLE
     Dosage: UNK
     Route: 065

REACTIONS (8)
  - Skin tightness [Unknown]
  - Deep vein thrombosis [Unknown]
  - Cellulitis [Unknown]
  - Emotional distress [Unknown]
  - Oedema peripheral [Unknown]
  - Pain in extremity [Unknown]
  - Ulcer [Unknown]
  - Hypertension [Unknown]
